FAERS Safety Report 14858364 (Version 5)
Quarter: 2020Q3

REPORT INFORMATION
  Report Type: Report from Study
  Country: US (occurrence: US)
  Receive Date: 20180508
  Receipt Date: 20180830
  Transmission Date: 20201104
  Serious: Yes (Hospitalization)
  Sender: FDA-Public Use
  Company Number: US-ASTRAZENECA-2018SE58842

PATIENT
  Age: 57 Year
  Sex: Male

DRUGS (34)
  1. ACALABRUTINIB. [Suspect]
     Active Substance: ACALABRUTINIB
     Indication: B-CELL LYMPHOMA REFRACTORY
     Route: 048
     Dates: start: 20180430, end: 20180430
  2. VISTUSERTIB. [Suspect]
     Active Substance: VISTUSERTIB
     Indication: B-CELL LYMPHOMA REFRACTORY
     Route: 048
     Dates: start: 20180404, end: 20180404
  3. ZOVIRAX [Concomitant]
     Active Substance: ACYCLOVIR
     Indication: INFECTION PROPHYLAXIS
     Route: 048
     Dates: start: 20170417
  4. VISTUSERTIB. [Suspect]
     Active Substance: VISTUSERTIB
     Indication: B-CELL LYMPHOMA REFRACTORY
     Route: 048
     Dates: start: 20180228, end: 20180301
  5. VISTUSERTIB. [Suspect]
     Active Substance: VISTUSERTIB
     Indication: B-CELL LYMPHOMA REFRACTORY
     Route: 048
     Dates: start: 20180321, end: 20180322
  6. VISTUSERTIB. [Suspect]
     Active Substance: VISTUSERTIB
     Indication: B-CELL LYMPHOMA REFRACTORY
     Route: 048
     Dates: start: 20180405, end: 20180405
  7. VISTUSERTIB. [Suspect]
     Active Substance: VISTUSERTIB
     Indication: B-CELL LYMPHOMA REFRACTORY
     Route: 048
     Dates: start: 20180425, end: 20180426
  8. LORATADINE. [Concomitant]
     Active Substance: LORATADINE
     Indication: SEASONAL ALLERGY
     Route: 048
     Dates: start: 20170918
  9. ACALABRUTINIB. [Suspect]
     Active Substance: ACALABRUTINIB
     Indication: B-CELL LYMPHOMA REFRACTORY
     Route: 048
     Dates: start: 20180428, end: 20180428
  10. VISTUSERTIB. [Suspect]
     Active Substance: VISTUSERTIB
     Indication: B-CELL LYMPHOMA REFRACTORY
     Route: 048
     Dates: start: 20180221, end: 20180222
  11. VISTUSERTIB. [Suspect]
     Active Substance: VISTUSERTIB
     Indication: B-CELL LYMPHOMA REFRACTORY
     Route: 048
     Dates: start: 20180411, end: 20180411
  12. CARVEDILOL. [Concomitant]
     Active Substance: CARVEDILOL
     Indication: CARDIAC FAILURE CONGESTIVE
     Route: 048
     Dates: start: 20180306
  13. ACALABRUTINIB. [Suspect]
     Active Substance: ACALABRUTINIB
     Indication: B-CELL LYMPHOMA REFRACTORY
     Route: 048
     Dates: start: 20180429, end: 20180429
  14. ACALABRUTINIB. [Suspect]
     Active Substance: ACALABRUTINIB
     Indication: B-CELL LYMPHOMA REFRACTORY
     Route: 048
     Dates: start: 20180515, end: 20180613
  15. VISTUSERTIB. [Suspect]
     Active Substance: VISTUSERTIB
     Indication: B-CELL LYMPHOMA REFRACTORY
     Route: 048
     Dates: start: 20180606, end: 20180607
  16. VISTUSERTIB. [Suspect]
     Active Substance: VISTUSERTIB
     Indication: B-CELL LYMPHOMA REFRACTORY
     Route: 048
     Dates: start: 20180613, end: 20180614
  17. VISTUSERTIB. [Suspect]
     Active Substance: VISTUSERTIB
     Indication: B-CELL LYMPHOMA REFRACTORY
     Route: 048
     Dates: start: 20180328, end: 20180329
  18. VISTUSERTIB. [Suspect]
     Active Substance: VISTUSERTIB
     Indication: B-CELL LYMPHOMA REFRACTORY
     Route: 048
     Dates: start: 20180418, end: 20180419
  19. VISTUSERTIB. [Suspect]
     Active Substance: VISTUSERTIB
     Indication: B-CELL LYMPHOMA REFRACTORY
     Route: 048
     Dates: start: 20180517, end: 20180517
  20. VISTUSERTIB. [Suspect]
     Active Substance: VISTUSERTIB
     Indication: B-CELL LYMPHOMA REFRACTORY
     Route: 048
     Dates: start: 20180530, end: 20180531
  21. TYLENOL [Concomitant]
     Active Substance: ACETAMINOPHEN
     Indication: HEADACHE
     Dosage: 325.0MG AS REQUIRED
     Route: 048
     Dates: start: 20180225
  22. ACALABRUTINIB. [Suspect]
     Active Substance: ACALABRUTINIB
     Indication: B-CELL LYMPHOMA REFRACTORY
     Route: 048
     Dates: start: 20180403, end: 20180404
  23. ACALABRUTINIB. [Suspect]
     Active Substance: ACALABRUTINIB
     Indication: B-CELL LYMPHOMA REFRACTORY
     Route: 048
     Dates: start: 20180414, end: 20180415
  24. VISTUSERTIB. [Suspect]
     Active Substance: VISTUSERTIB
     Indication: B-CELL LYMPHOMA REFRACTORY
     Route: 048
     Dates: start: 20180314, end: 20180315
  25. ACALABRUTINIB. [Suspect]
     Active Substance: ACALABRUTINIB
     Indication: B-CELL LYMPHOMA REFRACTORY
     Route: 048
     Dates: start: 20180221, end: 20180402
  26. VISTUSERTIB. [Suspect]
     Active Substance: VISTUSERTIB
     Indication: B-CELL LYMPHOMA REFRACTORY
     Route: 048
     Dates: start: 20180523, end: 20180524
  27. CETIRIZINE [Concomitant]
     Active Substance: CETIRIZINE HYDROCHLORIDE
     Indication: SEASONAL ALLERGY
     Dosage: 10.0MG AS REQUIRED
     Route: 048
     Dates: start: 20171002
  28. TRAMADOL. [Concomitant]
     Active Substance: TRAMADOL
     Indication: PAIN
     Dosage: 25.0MG AS REQUIRED
     Route: 048
     Dates: start: 20171002
  29. ACALABRUTINIB. [Suspect]
     Active Substance: ACALABRUTINIB
     Indication: B-CELL LYMPHOMA REFRACTORY
     Route: 048
     Dates: start: 20180405, end: 20180413
  30. ACALABRUTINIB. [Suspect]
     Active Substance: ACALABRUTINIB
     Indication: B-CELL LYMPHOMA REFRACTORY
     Route: 048
     Dates: start: 20180416, end: 20180427
  31. VISTUSERTIB. [Suspect]
     Active Substance: VISTUSERTIB
     Indication: B-CELL LYMPHOMA REFRACTORY
     Route: 048
     Dates: start: 20180307, end: 20180308
  32. VISTUSERTIB. [Suspect]
     Active Substance: VISTUSERTIB
     Indication: B-CELL LYMPHOMA REFRACTORY
     Route: 048
     Dates: start: 20180412, end: 20180412
  33. TYLENOL [Concomitant]
     Active Substance: ACETAMINOPHEN
     Indication: PAIN
     Dosage: 325.0MG AS REQUIRED
     Route: 048
     Dates: start: 20180225
  34. TYLENOL [Concomitant]
     Active Substance: ACETAMINOPHEN
     Indication: PYREXIA
     Dosage: 325.0MG AS REQUIRED
     Route: 048
     Dates: start: 20180225

REACTIONS (4)
  - Lung opacity [Recovered/Resolved]
  - Pyrexia [Recovered/Resolved]
  - Anaemia [Recovered/Resolved]
  - Hypoxia [Recovered/Resolved]

NARRATIVE: CASE EVENT DATE: 20180428
